FAERS Safety Report 22286993 (Version 4)
Quarter: 2025Q1

REPORT INFORMATION
  Report Type: Report from Study
  Country: US (occurrence: US)
  Receive Date: 20230505
  Receipt Date: 20250226
  Transmission Date: 20250409
  Serious: Yes (Other)
  Sender: BIOGEN
  Company Number: US-BIOGEN-2023BI01203284

PATIENT
  Sex: Female
  Weight: 78 kg

DRUGS (10)
  1. TYSABRI [Suspect]
     Active Substance: NATALIZUMAB
     Indication: Multiple sclerosis
     Dosage: INFUSED OVER 1 HOUR
     Route: 050
     Dates: start: 20221019, end: 20240528
  2. TYLENOL [Concomitant]
     Active Substance: ACETAMINOPHEN
     Indication: Product used for unknown indication
     Route: 050
  3. XANAX [Concomitant]
     Active Substance: ALPRAZOLAM
     Indication: Product used for unknown indication
     Route: 050
  4. VITAMIN D3 [Concomitant]
     Active Substance: CHOLECALCIFEROL
     Indication: Product used for unknown indication
     Dosage: 2000 UNITS BY MOUTH AT BED TIME
     Route: 050
  5. TUSSIONEX (HYDROCODONE, CHLORPHENIRAMINE) [Concomitant]
     Indication: Cough
     Dosage: 10-8 MG/5ML ER SUSPENSION.
     Route: 050
  6. PRILOSEC [Concomitant]
     Active Substance: OMEPRAZOLE MAGNESIUM
     Indication: Product used for unknown indication
     Route: 050
  7. DECADRON [Concomitant]
     Active Substance: DEXAMETHASONE
     Indication: Product used for unknown indication
     Dosage: TAKE 2 TABLETS (8 MG) BY MOUTH FOR 1 DAY AFTER TAKING CHEMOTHERAPY (PATIENT NOT TAKING REPORTED O...
     Route: 050
  8. ZYPREXA [Concomitant]
     Active Substance: OLANZAPINE
     Indication: Product used for unknown indication
     Dosage: TAKE 1 TABLET (5 MG) BY MOUTH FOR 4 NIGHTS STARTING THE DAY AFTER CHEMOTHERAPY. PATIENT NOT TAKIN...
     Route: 050
  9. COMPAZINE [Concomitant]
     Active Substance: PROCHLORPERAZINE MALEATE
     Indication: Product used for unknown indication
     Route: 050
  10. VITAMIN A [Concomitant]
     Active Substance: VITAMIN A
     Indication: Product used for unknown indication
     Route: 050

REACTIONS (1)
  - Neuroendocrine tumour of the lung metastatic [Unknown]
